FAERS Safety Report 12159536 (Version 11)
Quarter: 2017Q3

REPORT INFORMATION
  Report Type: Report from Study
  Country: US (occurrence: PR)
  Receive Date: 20160308
  Receipt Date: 20170830
  Transmission Date: 20171127
  Serious: Yes (Hospitalization, Other)
  Sender: FDA-Public Use
  Company Number: US-PFIZER INC-2015032192

PATIENT
  Age: 66 Year
  Sex: Female
  Weight: 56 kg

DRUGS (13)
  1. BOSULIF [Suspect]
     Active Substance: BOSUTINIB MONOHYDRATE
     Dosage: 500 MG, DAILY
     Route: 048
  2. BOSULIF [Suspect]
     Active Substance: BOSUTINIB MONOHYDRATE
     Dosage: 400 MG, DAILY
     Route: 048
  3. EFFEXOR [Concomitant]
     Active Substance: VENLAFAXINE HYDROCHLORIDE
     Dosage: UNK
  4. BOSULIF [Suspect]
     Active Substance: BOSUTINIB MONOHYDRATE
     Dosage: 500 MG, 1X/DAY
     Route: 048
  5. BOSULIF [Suspect]
     Active Substance: BOSUTINIB MONOHYDRATE
     Dosage: 400 MG, DAILY
     Route: 048
  6. PRILOSEC [Concomitant]
     Active Substance: OMEPRAZOLE MAGNESIUM
     Dosage: UNK
  7. PROTONIX [Concomitant]
     Active Substance: PANTOPRAZOLE SODIUM
     Dosage: UNK
  8. NAMENDA [Concomitant]
     Active Substance: MEMANTINE HYDROCHLORIDE
     Dosage: UNK
  9. BOSULIF [Suspect]
     Active Substance: BOSUTINIB MONOHYDRATE
     Indication: CHRONIC MYELOID LEUKAEMIA
     Dosage: 500 MG, 1X/DAY
     Route: 048
     Dates: start: 20140415
  10. GAVISCON [Concomitant]
     Active Substance: ALUMINUM HYDROXIDE\MAGNESIUM CARBONATE
     Dosage: UNK
  11. DOXEPIN [Concomitant]
     Active Substance: DOXEPIN
     Dosage: UNK
  12. BOSULIF [Suspect]
     Active Substance: BOSUTINIB MONOHYDRATE
     Dosage: 500 MG, DAILY
     Route: 048
  13. ALPRAZOLAM. [Concomitant]
     Active Substance: ALPRAZOLAM
     Dosage: UNK

REACTIONS (29)
  - Panic attack [Unknown]
  - Gingival hypertrophy [Unknown]
  - Pain [Unknown]
  - Dysphagia [Unknown]
  - Hepatitis [Not Recovered/Not Resolved]
  - Rectal haemorrhage [Unknown]
  - Asthenia [Not Recovered/Not Resolved]
  - Dehydration [Unknown]
  - Weight decreased [Not Recovered/Not Resolved]
  - Depression [Not Recovered/Not Resolved]
  - Diarrhoea [Unknown]
  - Decreased appetite [Not Recovered/Not Resolved]
  - Dry skin [Unknown]
  - Conjunctivitis [Unknown]
  - Haemorrhage [Unknown]
  - Vomiting [Unknown]
  - Rash [Unknown]
  - Melanoderma [Unknown]
  - Fatigue [Unknown]
  - Abdominal pain [Unknown]
  - Haemorrhoids [Unknown]
  - Headache [Unknown]
  - Skin lesion [Unknown]
  - Blister [Unknown]
  - Haemoglobin decreased [Unknown]
  - Gastric ulcer [Unknown]
  - Abdominal discomfort [Unknown]
  - Skin exfoliation [Unknown]
  - Palpitations [Unknown]

NARRATIVE: CASE EVENT DATE: 2016
